FAERS Safety Report 4366435-0 (Version None)
Quarter: 2004Q2

REPORT INFORMATION
  Report Type: 
  Country: None (occurrence: None)
  Receive Date: 20040527
  Receipt Date: 20040324
  Transmission Date: 20050107
  Serious: No
  Sender: FDA-Public Use
  Company Number: US-BRISTOL-MYERS SQUIBB COMPANY-12540910

PATIENT
  Age: 61 Year
  Sex: Male
  Weight: 92 kg

DRUGS (21)
  1. ERBITUX [Suspect]
     Indication: RECTAL CANCER METASTATIC
     Dosage: 2ND DOSE GIVEN 18MAR04
     Route: 042
     Dates: start: 20040311, end: 20040311
  2. CPT-11 [Concomitant]
  3. TYLENOL [Concomitant]
     Indication: PREMEDICATION
     Dates: start: 20040311, end: 20040311
  4. BENADRYL [Concomitant]
     Indication: PREMEDICATION
     Dates: start: 20040311, end: 20040311
  5. ZOFRAN [Concomitant]
     Indication: PREMEDICATION
     Dates: start: 20040311, end: 20040311
  6. DECADRON [Concomitant]
     Indication: PREMEDICATION
     Dates: start: 20040311, end: 20040311
  7. ACCUPRIL [Concomitant]
  8. POTASSIUM [Concomitant]
  9. LASIX [Concomitant]
  10. COREG [Concomitant]
  11. ASPIRIN [Concomitant]
  12. ZOCOR [Concomitant]
  13. NIASPAN [Concomitant]
  14. NITROGLYCERIN [Concomitant]
  15. MULTI-VITAMIN [Concomitant]
  16. LORAZEPAM [Concomitant]
  17. COMPAZINE [Concomitant]
  18. ANZEMET [Concomitant]
  19. OMEPRAZOLE [Concomitant]
  20. MEGACE [Concomitant]
  21. RESTORIL [Concomitant]

REACTIONS (1)
  - DERMATITIS ACNEIFORM [None]
